FAERS Safety Report 8504803 (Version 9)
Quarter: 2012Q4

REPORT INFORMATION
  Report Type: 
  Country: US (occurrence: US)
  Receive Date: 20120411
  Receipt Date: 20120830
  Transmission Date: 20130627
  Serious: Yes (Other)
  Sender: FDA-Public Use
  Company Number: US-PFIZER INC-2012086392

PATIENT
  Age: 47 Year
  Sex: Female

DRUGS (18)
  1. NEURONTIN [Suspect]
     Dosage: 1200 mg, 3x/day
     Dates: start: 20040401
  2. GEODON [Suspect]
     Dosage: UNK
  3. LITHIUM CARBONATE [Suspect]
     Dosage: UNK
  4. TOPAMAX [Suspect]
     Dosage: 20 mg, UNK
  5. TOPAMAX [Suspect]
     Dosage: UNK
  6. CYMBALTA [Suspect]
     Dosage: 120 mg, UNK
  7. CYMBALTA [Suspect]
     Dosage: UNK
  8. THORAZINE [Suspect]
     Indication: MENTAL DISORDER
     Dosage: UNK, daily
     Dates: start: 201204, end: 2012
  9. PRAVACHOL [Concomitant]
     Dosage: 20
  10. FISH OIL [Concomitant]
     Dosage: UNK
  11. LASIX [Concomitant]
     Dosage: 80 mg, UNK
  12. SYNTHROID [Concomitant]
     Dosage: 120 mcg, UNK
  13. SYNTHROID [Concomitant]
     Dosage: 112 ug, UNK
  14. ALLOPURINOL [Concomitant]
     Dosage: 300 mg, UNK
  15. LISINOPRIL [Concomitant]
     Dosage: 20/25, UNK
  16. PREVACID [Concomitant]
     Dosage: 30 mg, UNK
  17. MIRALAX [Concomitant]
     Dosage: UNK
  18. KLONOPIN [Concomitant]
     Dosage: UNK

REACTIONS (7)
  - Transient ischaemic attack [Recovered/Resolved]
  - Mental impairment [Recovered/Resolved]
  - Dyspnoea [Recovered/Resolved]
  - Dysarthria [Recovered/Resolved]
  - Hypoaesthesia [Recovered/Resolved]
  - Asthenia [Recovered/Resolved]
  - Mental disorder [Recovered/Resolved]
